FAERS Safety Report 4316448-X (Version None)
Quarter: 2004Q1

REPORT INFORMATION
  Report Type: 
  Country: None (occurrence: None)
  Receive Date: 20040311
  Receipt Date: 20040224
  Transmission Date: 20041129
  Serious: Yes (Disabling)
  Sender: FDA-Public Use
  Company Number: A01200400482

PATIENT
  Age: 68 Year
  Sex: Female

DRUGS (11)
  1. ZOLPIDEM - TABLET - 5 MG / TABLET - 5 MG [Suspect]
     Indication: INSOMNIA
     Dosage: 2.5 MG / 5 MG ONCE ORAL
     Route: 048
     Dates: start: 20030618, end: 20031008
  2. ZOLPIDEM - TABLET - 5 MG / TABLET - 5 MG [Suspect]
     Indication: INSOMNIA
     Dosage: 2.5 MG / 5 MG ONCE ORAL
     Route: 048
     Dates: start: 20031009, end: 20031009
  3. CHLORPHENIRAMINE MALEATE [Suspect]
     Indication: SKIN DISORDER
     Dosage: 6 MG ORAL
     Route: 048
     Dates: start: 20030702, end: 20031015
  4. VOLTAREN [Concomitant]
  5. NORVASC [Concomitant]
  6. MERISLON (BETAHISTINE HYDROCHLORIDE) [Concomitant]
  7. MUCOSTA (REBAMIPIDE) [Concomitant]
  8. VITAMEDIN (BENFOTIAMINE) [Concomitant]
  9. GAMOFA (FAMOTIDINE) [Concomitant]
  10. PRAVASTATIN [Concomitant]
  11. GLIMICRON (GLICLAZIDE) [Concomitant]

REACTIONS (15)
  - AMNESIA [None]
  - CHEST PAIN [None]
  - COMA [None]
  - CONFUSIONAL STATE [None]
  - CONTUSION [None]
  - DELIRIUM [None]
  - DRUG INTERACTION POTENTIATION [None]
  - EXCITABILITY [None]
  - EXCORIATION [None]
  - HAEMORRHAGE INTRACRANIAL [None]
  - HYPERSOMNIA [None]
  - PRURITUS [None]
  - SKULL FRACTURE [None]
  - SOMNOLENCE [None]
  - SPINAL FRACTURE [None]
